FAERS Safety Report 23734262 (Version 4)
Quarter: 2024Q2

REPORT INFORMATION
  Report Type: Spontaneous
  Country: CA (occurrence: CA)
  Receive Date: 20240412
  Receipt Date: 20240503
  Transmission Date: 20240716
  Serious: Yes (Hospitalization, Other)
  Sender: FDA-Public Use
  Company Number: CA-TEVA-VS-3181766

PATIENT
  Age: 60 Year
  Sex: Male

DRUGS (13)
  1. METFORMIN [Suspect]
     Active Substance: METFORMIN HYDROCHLORIDE
     Indication: Product used for unknown indication
     Route: 065
  2. METFORMIN [Suspect]
     Active Substance: METFORMIN HYDROCHLORIDE
     Indication: Product used for unknown indication
     Route: 065
  3. PREGABALIN [Concomitant]
     Active Substance: PREGABALIN
     Indication: Product used for unknown indication
     Route: 065
  4. PERINDOPRIL [Concomitant]
     Active Substance: PERINDOPRIL
     Indication: Product used for unknown indication
     Route: 065
  5. PANTOPRAZOLE [Concomitant]
     Active Substance: PANTOPRAZOLE
     Indication: Product used for unknown indication
     Route: 065
  6. EZETIMIBE [Concomitant]
     Active Substance: EZETIMIBE
     Indication: Product used for unknown indication
     Route: 065
  7. ATORVASTATIN [Concomitant]
     Active Substance: ATORVASTATIN
     Indication: Product used for unknown indication
     Route: 065
  8. ATORVASTATIN [Concomitant]
     Active Substance: ATORVASTATIN
     Indication: Product used for unknown indication
     Route: 048
  9. AMLODIPINE [Concomitant]
     Active Substance: AMLODIPINE BESYLATE
     Indication: Product used for unknown indication
     Route: 065
  10. SOVALDI [Concomitant]
     Active Substance: SOFOSBUVIR
     Indication: Hepatitis C
     Route: 065
  11. VELPATASVIR [Concomitant]
     Active Substance: VELPATASVIR
     Indication: Hepatitis C
     Route: 065
  12. VOXILAPREVIR [Concomitant]
     Active Substance: VOXILAPREVIR
     Indication: Hepatitis C
     Route: 065
  13. PIPERACILLIN SODIUM\TAZOBACTAM SODIUM [Concomitant]
     Active Substance: PIPERACILLIN SODIUM\TAZOBACTAM SODIUM
     Indication: Sepsis
     Route: 042

REACTIONS (18)
  - Agitation [Recovered/Resolved]
  - Altered state of consciousness [Recovered/Resolved]
  - Confusional state [Recovered/Resolved]
  - Toxicity to various agents [Recovered/Resolved]
  - Tachypnoea [Recovered/Resolved]
  - Restlessness [Recovered/Resolved]
  - Psychomotor hyperactivity [Recovered/Resolved]
  - Lactic acidosis [Recovered/Resolved]
  - Metabolic acidosis [Recovered/Resolved]
  - Hypothermia [Recovered/Resolved]
  - Disorientation [Recovered/Resolved]
  - Accidental exposure to product [Recovered/Resolved]
  - Contraindicated product administered [Recovered/Resolved]
  - Drug level above therapeutic [Recovered/Resolved]
  - Wrong product administered [Recovered/Resolved]
  - Prescription drug used without a prescription [Recovered/Resolved]
  - Lactic acidosis [Recovered/Resolved]
  - Overdose [Unknown]
